FAERS Safety Report 12047737 (Version 2)
Quarter: 2016Q1

REPORT INFORMATION
  Report Type: Spontaneous
  Country: US (occurrence: US)
  Receive Date: 20160209
  Receipt Date: 20160212
  Transmission Date: 20160526
  Serious: Yes (Other)
  Sender: FDA-Public Use
  Company Number: US-ROCHE-1705937

PATIENT
  Sex: Female

DRUGS (1)
  1. KLONOPIN [Suspect]
     Active Substance: CLONAZEPAM
     Indication: ANXIETY
     Route: 048

REACTIONS (7)
  - Wrong technique in product usage process [Unknown]
  - Emotional distress [Unknown]
  - Uterine leiomyoma [Unknown]
  - Salivary gland calculus [Unknown]
  - Dependence [Unknown]
  - Cyst [Unknown]
  - Pain [Unknown]
